FAERS Safety Report 9176837 (Version 5)
Quarter: 2015Q4

REPORT INFORMATION
  Report Type: Report from Study
  Country: CA (occurrence: CA)
  Receive Date: 20130321
  Receipt Date: 20151026
  Transmission Date: 20160305
  Serious: Yes (Other)
  Sender: FDA-Public Use
  Company Number: PHHY2011CA110968

PATIENT
  Age: 69 Year
  Sex: Male

DRUGS (17)
  1. APO-AMIODARONE [Concomitant]
     Active Substance: AMIODARONE
     Indication: CARDIAC FIBRILLATION
     Dosage: 0.5 DF, QD
     Route: 065
  2. APO-METOPROLOL [Concomitant]
     Active Substance: METOPROLOL
     Indication: CARDIAC FIBRILLATION
     Dosage: 0.5 DF, BID
     Route: 065
  3. ACTONEL [Concomitant]
     Active Substance: RISEDRONATE SODIUM
     Indication: HIP DEFORMITY
     Dosage: 1 DF, QW, WITH FOOD SUNDAY BREAKFAST
     Route: 065
  4. VITAMIN D3 [Concomitant]
     Active Substance: CHOLECALCIFEROL
     Indication: SCOLIOSIS
  5. APO ATORVASTATIN [Concomitant]
     Active Substance: ATORVASTATIN CALCIUM
     Indication: HYPERCHOLESTEROLAEMIA
     Dosage: 1 DF, QD EVERY TIME AT BEDTIME
     Route: 065
  6. SANDOSTATIN LAR DEPOT [Suspect]
     Active Substance: OCTREOTIDE ACETATE
     Dosage: 30 MG, QMO (EVERY 4 WEEKS)
     Route: 030
     Dates: start: 20141210
  7. XELODA [Concomitant]
     Active Substance: CAPECITABINE
     Indication: PRODUCT USED FOR UNKNOWN INDICATION
     Dosage: 3 DF, BID, AFTER FOOD ON DAYS 1 TO 4, 3 AFTER BREAKFAST AND 3 AFTER DINNER
     Route: 048
  8. CALCIUM [Concomitant]
     Active Substance: CALCIUM
     Indication: OSTEOPOROSIS
     Dosage: 1 DF, TWICE DAILY (BID) WITH LUNCH AND DINNER
     Route: 065
  9. LEVOCARB [Concomitant]
     Active Substance: CARBIDOPA\LEVODOPA
     Indication: PARKINSON^S DISEASE
     Dosage: UNK
     Route: 065
  10. MIRAPEX [Concomitant]
     Active Substance: PRAMIPEXOLE DIHYDROCHLORIDE
     Indication: PARKINSON^S DISEASE
     Dosage: 2 DF, TID
     Route: 065
     Dates: end: 20150322
  11. TEMODAL [Concomitant]
     Active Substance: TEMOZOLOMIDE
     Indication: PRODUCT USED FOR UNKNOWN INDICATION
     Dosage: 4 DF, QD, ON DAYS 10 TO 14 (6 DAYS) TAKEN IN LATE EVENING WITH AA GRANISETRON
     Route: 048
  12. SANDOSTATIN LAR DEPOT [Suspect]
     Active Substance: OCTREOTIDE ACETATE
     Indication: CARCINOID TUMOUR
     Dosage: 60 MG, QMO
     Route: 030
     Dates: start: 20091027
  13. FRAGMIN [Concomitant]
     Active Substance: DALTEPARIN SODIUM
     Indication: COAGULOPATHY
     Dosage: 15000 IU/0.6 ML, QD
     Route: 065
  14. VITAMIN D3 [Concomitant]
     Active Substance: CHOLECALCIFEROL
     Indication: INTERVERTEBRAL DISC DEGENERATION
     Dosage: 1 DF, ONCE OR TWICE DAILY FOR LUNCH AND FOR DINNER
     Route: 065
  15. SYNTHROID [Concomitant]
     Active Substance: LEVOTHYROXINE SODIUM
     Indication: THYROID DISORDER
     Dosage: 1 DF, QD, MORNING ON EMPTY STOMACH, WAIT TO EAT HALF TO ONE HOUR
     Route: 065
  16. APO-LEVOCARB [Concomitant]
     Active Substance: CARBIDOPA\LEVODOPA
     Indication: PARKINSON^S DISEASE
     Dosage: 3 DF, EVERY 3 AND A HALF HOURS, 6 TIMES A DAY
     Route: 065
  17. GRANISETRON [Concomitant]
     Active Substance: GRANISETRON
     Indication: NAUSEA
     Dosage: 2 DF, QD ON DAYS 10 TO 14 (3 DAYS) TAKEN IN LATE EVENING WITH TEMODAL
     Route: 048

REACTIONS (9)
  - Back pain [Unknown]
  - Contusion [Unknown]
  - Hand fracture [Unknown]
  - Blood pressure systolic increased [Unknown]
  - Blood pressure diastolic increased [Unknown]
  - Weight decreased [Unknown]
  - Hallucination [Unknown]
  - Heart rate decreased [Unknown]
  - Injection site mass [Unknown]

NARRATIVE: CASE EVENT DATE: 2011
